FAERS Safety Report 18103715 (Version 1)
Quarter: 2020Q3

REPORT INFORMATION
  Report Type: Spontaneous
  Country: CA (occurrence: CA)
  Receive Date: 20200803
  Receipt Date: 20200803
  Transmission Date: 20201103
  Serious: Yes (Hospitalization, Other)
  Sender: FDA-Public Use
  Company Number: CA-PFIZER INC-2020291074

PATIENT
  Age: 5 Decade
  Sex: Female

DRUGS (1)
  1. IBRANCE [Suspect]
     Active Substance: PALBOCICLIB
     Indication: BREAST CANCER METASTATIC
     Dosage: 125 MG 3:1 DOSING

REACTIONS (3)
  - Pleural effusion [Recovering/Resolving]
  - Carcinoembryonic antigen increased [Unknown]
  - Cardiac tamponade [Recovering/Resolving]
